FAERS Safety Report 7323298-9 (Version None)
Quarter: 2011Q1

REPORT INFORMATION
  Report Type: 
  Country: None (occurrence: None)
  Receive Date: 20110217
  Receipt Date: 20110204
  Transmission Date: 20110831
  Serious: Yes (Other)
  Sender: FDA-Public Use
  Company Number: 2011AC000010

PATIENT
  Age: 70 Year
  Sex: Male

DRUGS (18)
  1. AMITRIPTYLINE HCL [Concomitant]
  2. SOTALOL HYDROCHLORIDE [Concomitant]
  3. DIGOXIN [Suspect]
     Indication: ATRIAL FIBRILLATION
     Dosage: PO
     Route: 048
  4. BUTRANS [Concomitant]
  5. ZOPICLONE [Concomitant]
  6. BENDROFLUMETHIAZIDE [Concomitant]
  7. TELMISARTAN [Concomitant]
  8. DOXAZOSIN [Concomitant]
  9. FOLIC ACID [Concomitant]
  10. FLUVASTATIN [Concomitant]
  11. DISOPYRAMIDE [Concomitant]
  12. BETNOVATE [Concomitant]
  13. RANITIDINE [Concomitant]
  14. WARFARIN [Concomitant]
  15. PARACETAMOL [Concomitant]
  16. METHOTREXATE [Concomitant]
  17. LEVOTHYROXINE SODIUM [Concomitant]
  18. BEZALIP MONO [Concomitant]

REACTIONS (1)
  - ATRIAL FIBRILLATION [None]
